FAERS Safety Report 5220999-3 (Version None)
Quarter: 2007Q1

REPORT INFORMATION
  Report Type: 
  Country: None (occurrence: None)
  Receive Date: 20070123
  Receipt Date: 20070116
  Transmission Date: 20070707
  Serious: Yes (Congenital Anomaly)
  Sender: FDA-Public Use
  Company Number: 2007AL000231

PATIENT
  Sex: Female

DRUGS (1)
  1. FLUOXETINE [Suspect]
     Indication: DEPRESSION
     Dosage: TRPL
     Route: 064

REACTIONS (2)
  - DRUG EXPOSURE DURING PREGNANCY [None]
  - LIMB HYPOPLASIA CONGENITAL [None]
